FAERS Safety Report 17716164 (Version 1)
Quarter: 2020Q2

REPORT INFORMATION
  Report Type: Spontaneous
  Country: US (occurrence: US)
  Receive Date: 20200428
  Receipt Date: 20200428
  Transmission Date: 20200714
  Serious: No
  Sender: FDA-Public Use
  Company Number: US-UNITED THERAPEUTICS-UNT-2020-001517

PATIENT
  Sex: Female

DRUGS (2)
  1. ADEMPAS [Suspect]
     Active Substance: RIOCIGUAT
     Indication: PRODUCT USED FOR UNKNOWN INDICATION
     Dosage: 0.5 MG, UNK
     Route: 065
  2. REMODULIN [Suspect]
     Active Substance: TREPROSTINIL
     Indication: PULMONARY ARTERIAL HYPERTENSION
     Dosage: 0.122 ?G/KG, CONTINUING
     Route: 041
     Dates: start: 20190501

REACTIONS (7)
  - Headache [Unknown]
  - Dyspepsia [Not Recovered/Not Resolved]
  - Treatment noncompliance [Unknown]
  - Nasal congestion [Unknown]
  - Dizziness [Unknown]
  - Muscular weakness [Unknown]
  - Hypotension [Unknown]
